FAERS Safety Report 5677555-2 (Version None)
Quarter: 2008Q1

REPORT INFORMATION
  Report Type: 
  Country: None (occurrence: None)
  Receive Date: 20080324
  Receipt Date: 20080313
  Transmission Date: 20080703
  Serious: Yes (Hospitalization, Other)
  Sender: FDA-Public Use
  Company Number: JP-ROCHE-552715

PATIENT
  Age: 50 Year
  Sex: Male

DRUGS (4)
  1. RIBAVIRIN (NON-ROCHE/NON-COMPARATOR) [Suspect]
     Route: 048
     Dates: end: 20071201
  2. PEG-INTERFERON ALFA 2B [Suspect]
     Route: 058
     Dates: start: 20070101, end: 20071201
  3. NITROGLYCERIN [Suspect]
     Dosage: DRUG: MYOCOR, FORM: SPRAY
     Route: 060
     Dates: start: 20071201
  4. PSYCHOTROPIC DRUG NOS [Suspect]
     Indication: DEPRESSION
     Dosage: DRUG: PSYCHOTROPIC AGENTS
     Route: 065

REACTIONS (4)
  - MUSCULOSKELETAL STIFFNESS [None]
  - NEPHRITIS INTERSTITIAL [None]
  - RENAL FAILURE [None]
  - RENAL VASCULITIS [None]
